FAERS Safety Report 21331554 (Version 4)
Quarter: 2022Q4

REPORT INFORMATION
  Report Type: Report from Study
  Country: US (occurrence: US)
  Receive Date: 20220914
  Receipt Date: 20221025
  Transmission Date: 20230113
  Serious: Yes (Hospitalization)
  Sender: FDA-Public Use
  Company Number: US-BEIGENE USA INC-BGN-2022-008421

PATIENT

DRUGS (4)
  1. BRUKINSA [Suspect]
     Active Substance: ZANUBRUTINIB
     Indication: B-cell small lymphocytic lymphoma
     Dosage: 160 MILLIGRAM, BID
     Route: 048
  2. BRUKINSA [Suspect]
     Active Substance: ZANUBRUTINIB
     Dosage: 160 MILLIGRAM, BID
     Route: 048
     Dates: start: 20220901
  3. BRUKINSA [Suspect]
     Active Substance: ZANUBRUTINIB
     Dosage: 80 MILLIGRAM, BID
     Route: 048
     Dates: start: 20220908
  4. BRUKINSA [Suspect]
     Active Substance: ZANUBRUTINIB
     Dosage: 80 MILLIGRAM, BID
     Route: 048

REACTIONS (13)
  - Ammonia increased [Unknown]
  - Lower limb fracture [Unknown]
  - Blood immunoglobulin M decreased [Unknown]
  - Platelet count abnormal [Unknown]
  - Haemoglobin abnormal [Unknown]
  - Intentional dose omission [Unknown]
  - Rash [Unknown]
  - Pruritus [Unknown]
  - Fatigue [Unknown]
  - Blood test abnormal [Unknown]
  - Off label use [Unknown]
  - Prescribed underdose [Unknown]
  - Product dose omission issue [Unknown]

NARRATIVE: CASE EVENT DATE: 20220903
